FAERS Safety Report 6536894-3 (Version None)
Quarter: 2010Q1

REPORT INFORMATION
  Report Type: 
  Country: None (occurrence: None)
  Receive Date: 20100106
  Receipt Date: 20091222
  Transmission Date: 20100710
  Serious: Yes (Congenital Anomaly)
  Sender: FDA-Public Use
  Company Number: 1000011006

PATIENT
  Sex: Female
  Weight: 1.89 kg

DRUGS (7)
  1. ESCITALOPRAM [Suspect]
     Dosage: 20 MG (20 MG,  1 IN 1 D),TRANSPLACENTAL
     Route: 064
  2. DIPIPERON [Suspect]
     Dosage: 4 DOSAGE FORMS (4 DOSAGE FORMS, 1 IN 1 D), TRANSPLACENTAL
     Route: 064
  3. DIHYDROERGOTAMINE MESYLATE [Suspect]
     Dosage: 10 MG (10 MG, 1 IN 1 D), TRANSPLACENTAL
     Route: 064
  4. SERESTA [Suspect]
     Dosage: 75 MG (75 MG, 1 IN 1 D),  TRANSPLACENTAL
     Route: 064
  5. HAVLANE [Suspect]
     Dosage: 1 DOSAGE FORMS (1 DOSAGE FORMS, 1 IN 1 D), TRANSPLACENTAL
     Route: 064
  6. TRANXENE [Suspect]
     Dosage: 40 MG (40 MG,  1 IN 1 D), TRANSPLACENTAL
     Route: 064
  7. ARIPIPRAZOLE [Suspect]
     Dosage: 10 MG (10 MG,  1 IN 1 D),TRANSPLACENTAL
     Route: 064

REACTIONS (4)
  - FALLOT'S TETRALOGY [None]
  - FOETAL GROWTH RETARDATION [None]
  - MATERNAL DRUGS AFFECTING FOETUS [None]
  - PREMATURE BABY [None]
